FAERS Safety Report 8553476-2 (Version None)
Quarter: 2012Q3

REPORT INFORMATION
  Report Type: 
  Country: None (occurrence: None)
  Receive Date: 20120731
  Receipt Date: 20120725
  Transmission Date: 20120928
  Serious: Yes (Life-Threatening)
  Sender: FDA-Public Use
  Company Number: JP-PFIZER INC-2012111410

PATIENT
  Age: 67 Year
  Sex: Female
  Weight: 42 kg

DRUGS (25)
  1. VANCOMYCIN [Suspect]
     Indication: MUSCLE ABSCESS
     Dosage: 0.5G/2DAYS
     Route: 042
     Dates: start: 20120307, end: 20120409
  2. ALFAROL [Suspect]
     Indication: OSTEOPOROSIS
     Dosage: 0.5 UG (1ML) A DAY
     Route: 045
     Dates: start: 20120419, end: 20120507
  3. CLINDAMYCIN HCL [Suspect]
     Indication: MUSCLE ABSCESS
  4. CEFTRIAXONE [Concomitant]
     Dosage: 2 G, 2X/DAY
     Dates: start: 20120217
  5. ISONIAZID [Concomitant]
     Dosage: 300 MG, DAILY
     Dates: start: 20120307
  6. ETHAMBUTOL [Concomitant]
     Dosage: 500 MG, UNK
     Dates: start: 20120316
  7. MEROPENEM [Suspect]
     Dosage: 2 G, DAILY
     Route: 042
     Dates: start: 20120427, end: 20120506
  8. VANCOMYCIN [Suspect]
     Indication: MENINGITIS
     Dosage: 1 G/4DAYS
     Route: 042
     Dates: start: 20120207, end: 20120215
  9. VANCOMYCIN [Suspect]
     Dosage: 0.5G/4DAYS
     Route: 042
     Dates: start: 20120427, end: 20120506
  10. ACETAMINOPHEN [Suspect]
     Indication: ANTIPYRESIS
     Dosage: 0.4 MG, AS NEEDED
     Route: 045
     Dates: start: 20120101, end: 20120507
  11. ALBUMIN TANNATE [Suspect]
     Indication: PROPHYLAXIS AGAINST DIARRHOEA
     Dosage: 1 G, AS NEEDED
     Route: 045
     Dates: start: 20120427, end: 20120507
  12. RIFAMPICIN [Concomitant]
     Dosage: 600 MG DAILY
     Dates: start: 20120307
  13. PRODIF [Concomitant]
     Indication: SYSTEMIC CANDIDA
     Dosage: UNK
     Dates: start: 20120411, end: 20120424
  14. PREDNISOLONE [Concomitant]
     Indication: ASTHMA
     Dosage: 5 MG A DAY
     Route: 045
     Dates: start: 20120503, end: 20120507
  15. ACETAMINOPHEN [Suspect]
     Indication: ANALGESIC THERAPY
  16. AMPICILLIN [Concomitant]
     Dosage: 1 G, 2X/DAY
     Dates: start: 20120217
  17. MEROPENEM [Suspect]
     Indication: MUSCLE ABSCESS
     Dosage: 1 G, DAILY
     Route: 042
     Dates: start: 20120411, end: 20120420
  18. DEPAKENE [Suspect]
     Indication: CONVULSION
     Dosage: 400 MG (8ML) DAILY
     Route: 045
     Dates: start: 20120413, end: 20120507
  19. CEFAZOLIN SODIUM [Suspect]
     Indication: PROPHYLAXIS AGAINST DIARRHOEA
     Dosage: 1 G, 3X/DAY
     Route: 045
     Dates: start: 20120419, end: 20120507
  20. MEROPENEM [Suspect]
     Indication: MENINGITIS
     Dosage: 2MG, DAILY
     Route: 042
     Dates: start: 20120117, end: 20120216
  21. LENDORMIN [Suspect]
     Indication: INSOMNIA
     Dosage: 0.25 MG, AS NEEDED
     Route: 045
     Dates: start: 20120421
  22. PYRAZINAMIDE [Concomitant]
     Dosage: 1 G, UNK
     Dates: start: 20120316
  23. CLINDAMYCIN HCL [Suspect]
     Indication: MENINGITIS
     Dosage: 1200 MG, 2X/DAY
     Route: 042
     Dates: start: 20120411, end: 20120506
  24. AMBISOME [Suspect]
     Indication: INFECTION
     Dosage: 100 MG A DAY
     Route: 042
     Dates: start: 20120425, end: 20120504
  25. LANSOPRAZOLE [Suspect]
     Indication: GASTRIC ULCER
     Dosage: 30 MG A DAY
     Route: 045
     Dates: start: 20120321, end: 20120507

REACTIONS (1)
  - TOXIC EPIDERMAL NECROLYSIS [None]
